FAERS Safety Report 8621969-5 (Version None)
Quarter: 2012Q3

REPORT INFORMATION
  Report Type: 
  Country: None (occurrence: None)
  Receive Date: 20120823
  Receipt Date: 20120823
  Transmission Date: 20120928
  Serious: Yes (Hospitalization)
  Sender: FDA-Public Use
  Company Number: None

PATIENT
  Sex: Female
  Weight: 70 kg

DRUGS (2)
  1. TAXOL [Suspect]
     Dosage: 299 MG
  2. CARBOPLATIN [Suspect]
     Dosage: 376 MG

REACTIONS (10)
  - CLOSTRIDIUM DIFFICILE COLITIS [None]
  - THROMBOCYTOPENIA [None]
  - NAUSEA [None]
  - MALAISE [None]
  - DYSURIA [None]
  - CULTURE URINE POSITIVE [None]
  - WEIGHT DECREASED [None]
  - VOMITING [None]
  - ENTEROBACTER TEST POSITIVE [None]
  - ESCHERICHIA TEST POSITIVE [None]
